FAERS Safety Report 6754158-X (Version None)
Quarter: 2010Q2

REPORT INFORMATION
  Report Type: 
  Country: None (occurrence: None)
  Receive Date: 20100603
  Receipt Date: 20100519
  Transmission Date: 20101027
  Serious: Yes (Hospitalization, Other)
  Sender: FDA-Public Use
  Company Number: PHEH2005US03729

PATIENT
  Sex: Female
  Weight: 70.295 kg

DRUGS (87)
  1. ZOMETA [Suspect]
     Indication: BREAST CANCER METASTATIC
     Dosage: 4 MG/ MONTHLY
     Route: 042
     Dates: start: 20030901, end: 20050203
  2. ALENDRONATE SODIUM [Suspect]
     Indication: HYPERCALCAEMIA
     Route: 042
  3. ARIMIDEX [Suspect]
  4. FEMARA [Concomitant]
     Dosage: 2.5 MG, BID
     Route: 048
     Dates: start: 20030901, end: 20040201
  5. LOTREL [Concomitant]
     Dosage: 5/10 MG
  6. TAMOXIFEN CITRATE [Concomitant]
     Indication: BREAST CANCER
     Dosage: 10 MG, BID
     Route: 048
     Dates: start: 20020601, end: 20030901
  7. FASLODEX [Concomitant]
     Dosage: 250 MG, QMO
     Route: 042
     Dates: start: 20040201, end: 20050301
  8. FOSAMAX [Concomitant]
     Dosage: 20 MG, QD
     Route: 048
  9. ATENOLOL [Concomitant]
     Dosage: 50 MG, QD
     Route: 048
  10. LIPITOR [Concomitant]
     Dosage: 40 MG, UNK
  11. ZOLOFT [Concomitant]
     Dosage: 50 MG, UNK
  12. AMBIEN [Concomitant]
     Dosage: 10 MG, UNK
  13. HYDROCODONE [Concomitant]
     Dosage: UNK, UNK
  14. XANAX [Concomitant]
     Dosage: 0.25 MG, UNK
  15. FOLIC ACID [Concomitant]
     Dosage: 1 MG, UNK
  16. NEXIUM [Concomitant]
     Dosage: 40 MG, UNK
  17. IRON [Concomitant]
  18. GEMZAR [Concomitant]
     Dosage: UNK
     Dates: start: 20050501
  19. XELODA [Concomitant]
  20. TAXOTERE [Concomitant]
  21. PROTONIX [Concomitant]
  22. MULTI-VITAMINS [Concomitant]
  23. CALCIMATE PLUS [Concomitant]
  24. NEULASTA [Concomitant]
  25. ZEBETA [Concomitant]
     Dosage: UNK
  26. MIRALAX [Concomitant]
     Dosage: UNK
  27. PROVOCHOLINE [Concomitant]
     Dosage: UNK
  28. STOOL SOFTENER [Concomitant]
     Dosage: UNK
  29. ZOFRAN [Concomitant]
  30. COMPAZINE [Concomitant]
  31. ALPRAZOLAM [Concomitant]
  32. DEXAMETHASONE [Concomitant]
  33. PROPOXYPHENE NAPSYLATE W/ ACETAMINOPHEN [Concomitant]
  34. SILVER SULFADIAZINE [Concomitant]
  35. LEVAQUIN [Concomitant]
  36. AZITHROMYCIN [Concomitant]
  37. NYSTATIN [Concomitant]
  38. GLYCOLAX [Concomitant]
  39. HYDROCORTISONE WITH LIDOCAINE HYDROCHLORIDE [Concomitant]
  40. ACTONEL [Concomitant]
  41. POTASSIUM CHLORIDE [Concomitant]
  42. FUROSEMIDE [Concomitant]
  43. OXYCODONE HCL AND ACETAMINOPHEN [Concomitant]
  44. HYDROMORPHONE HYDROCHLORIDE [Concomitant]
  45. AROMASIN [Concomitant]
  46. SIMVASTATIN [Concomitant]
  47. EFFEXOR XR [Concomitant]
  48. METRONIDAZOLE [Concomitant]
  49. FENTANYL [Concomitant]
  50. MORPHINE SULFATE [Concomitant]
  51. IODOQUINOL [Concomitant]
  52. LEXAPRO [Concomitant]
  53. CITALOPRAM HYDROBROMIDE [Concomitant]
  54. MELOXICAM [Concomitant]
  55. OMEPRAZOLE [Concomitant]
  56. MIRTAZAPINE [Concomitant]
  57. METHADONE HCL [Concomitant]
  58. NAPROXEN [Concomitant]
  59. WELLBUTRIN XL [Concomitant]
  60. CELEBREX [Concomitant]
  61. LYRICA [Concomitant]
  62. CHOLINE MAGNESIUM TRISALICYLATE [Concomitant]
  63. GABAPENTIN [Concomitant]
  64. MEGESTROL ACETATE [Concomitant]
  65. PREDNISONE [Concomitant]
  66. AVELOX [Concomitant]
  67. METOCLOPRAMIDE [Concomitant]
  68. BUPROPION HCL [Concomitant]
  69. ONDANSETRON [Concomitant]
  70. FLUCONAZOLE [Concomitant]
  71. CEPHALEXIN [Concomitant]
  72. BETAMETHASONE DIPROPIONATE W/CLOTRIMAZOLE [Concomitant]
  73. SULFAMETHOXAZOLE AND TRIMETHOPRIM [Concomitant]
  74. CIALIS [Concomitant]
  75. CLOTRIMAZOLE [Concomitant]
  76. MUPIROCIN [Concomitant]
  77. TERCONAZOLE [Concomitant]
  78. ZOCOR [Concomitant]
  79. NEURONTIN [Concomitant]
  80. PROZAC [Concomitant]
  81. EVISTA [Concomitant]
  82. HORMONES [Concomitant]
  83. NAVELBINE [Concomitant]
  84. DOXORUBICIN HCL [Concomitant]
  85. GEMCITABINE HCL [Concomitant]
  86. LETROZOLE [Concomitant]
  87. MOBIC [Concomitant]

REACTIONS (93)
  - ABSCESS DRAINAGE [None]
  - ANAEMIA [None]
  - ANAL FISSURE EXCISION [None]
  - ANOPLASTY [None]
  - ANXIETY [None]
  - AREFLEXIA [None]
  - ARTHRALGIA [None]
  - BACK PAIN [None]
  - BONE DISORDER [None]
  - BONE OPERATION [None]
  - BONE PAIN [None]
  - BREAST RECONSTRUCTION [None]
  - CELLULITIS [None]
  - CHEST WALL OPERATION [None]
  - CONSTIPATION [None]
  - CYSTOCELE [None]
  - DENTAL CARE [None]
  - DYSPNOEA [None]
  - EATING DISORDER [None]
  - ECZEMA [None]
  - EMOTIONAL DISTRESS [None]
  - EXOSTOSIS [None]
  - EYE PAIN [None]
  - FAECAL INCONTINENCE [None]
  - FISTULA REPAIR [None]
  - GINGIVAL PAIN [None]
  - HAEMORRHOIDS [None]
  - HYPOAESTHESIA [None]
  - HYPOAESTHESIA ORAL [None]
  - IMPAIRED HEALING [None]
  - INGROWING NAIL [None]
  - INJURY [None]
  - INTERVERTEBRAL DISC OPERATION [None]
  - INTERVERTEBRAL DISC PROTRUSION [None]
  - JOINT ARTHROPLASTY [None]
  - KERATOCONJUNCTIVITIS SICCA [None]
  - KERATOMILEUSIS [None]
  - LUMBAR RADICULOPATHY [None]
  - MEMORY IMPAIRMENT [None]
  - METASTASES TO BONE [None]
  - MICTURITION URGENCY [None]
  - MITRAL VALVE PROLAPSE [None]
  - MUSCULAR WEAKNESS [None]
  - NAIL OPERATION [None]
  - NEURALGIA [None]
  - NIGHT SWEATS [None]
  - NUCLEAR MAGNETIC RESONANCE IMAGING ABNORMAL [None]
  - OEDEMA PERIPHERAL [None]
  - OESOPHAGEAL CANDIDIASIS [None]
  - ORAL CAVITY FISTULA [None]
  - ORAL DISORDER [None]
  - ORAL MUCOSAL EXFOLIATION [None]
  - OSTEITIS [None]
  - OSTEOARTHRITIS [None]
  - OSTEONECROSIS OF JAW [None]
  - PAIN [None]
  - PAIN IN EXTREMITY [None]
  - PARAESTHESIA [None]
  - PHYSICAL DISABILITY [None]
  - PLANTAR FASCIITIS [None]
  - PLASTIC SURGERY [None]
  - POSTURE ABNORMAL [None]
  - PROCTALGIA [None]
  - PROLAPSE REPAIR [None]
  - PURULENT DISCHARGE [None]
  - PYREXIA [None]
  - RADIOTHERAPY [None]
  - RECTAL ABSCESS [None]
  - RECTAL FISSURE [None]
  - RECTAL HAEMORRHAGE [None]
  - RECTOCELE [None]
  - RESIDUAL URINE [None]
  - RHINOPLASTY [None]
  - SALPINGO-OOPHORECTOMY [None]
  - SCAR [None]
  - SEBORRHOEIC KERATOSIS [None]
  - SEROMA [None]
  - SPINAL DECOMPRESSION [None]
  - SPINAL LAMINECTOMY [None]
  - SPINAL OSTEOARTHRITIS [None]
  - STAPHYLOCOCCAL INFECTION [None]
  - SURGERY [None]
  - TOOTH EXTRACTION [None]
  - TOOTH INFECTION [None]
  - TOOTH LOSS [None]
  - TOOTHACHE [None]
  - URINARY INCONTINENCE [None]
  - URINARY TRACT INFECTION [None]
  - UTERINE PROLAPSE REPAIR [None]
  - WALKING DISABILITY [None]
  - WHITE BLOOD CELL COUNT INCREASED [None]
  - WOUND DRAINAGE [None]
  - WOUND INFECTION STAPHYLOCOCCAL [None]
